FAERS Safety Report 10505716 (Version 1)
Quarter: 2014Q4

REPORT INFORMATION
  Report Type: Spontaneous
  Country: US (occurrence: US)
  Receive Date: 20141008
  Receipt Date: 20141008
  Transmission Date: 20150528
  Serious: Yes (Other)
  Sender: FDA-Public Use
  Company Number: US-PFIZER INC-2014273907

PATIENT
  Sex: Male

DRUGS (1)
  1. PREMARIN [Suspect]
     Active Substance: ESTROGENS, CONJUGATED
     Dosage: UNK
     Route: 050

REACTIONS (3)
  - Testicular atrophy [Unknown]
  - Exposure via partner [Unknown]
  - Gynaecomastia [Unknown]
